FAERS Safety Report 10022214 (Version 1)
Quarter: 2014Q1

REPORT INFORMATION
  Report Type: Report from Study
  Country: IT (occurrence: IT)
  Receive Date: 20140319
  Receipt Date: 20140319
  Transmission Date: 20141002
  Serious: Yes (Hospitalization)
  Sender: FDA-Public Use
  Company Number: IT-TEVA-469275USA

PATIENT
  Age: 68 Year
  Sex: Male

DRUGS (7)
  1. BENDAMUSTINE [Suspect]
     Indication: PLASMA CELL MYELOMA
     Dosage: CYCLIC
     Route: 065
     Dates: start: 20121227, end: 20130128
  2. VELCADE [Suspect]
     Indication: PLASMA CELL MYELOMA
     Route: 065
     Dates: start: 20130509, end: 20130523
  3. VELCADE [Suspect]
     Indication: PLASMA CELL MYELOMA
     Route: 065
     Dates: start: 20130304
  4. VINCRISTINE [Suspect]
     Indication: PLASMA CELL MYELOMA
     Dosage: CYCLIC
     Route: 065
     Dates: start: 20121227, end: 20130128
  5. DEXAMETHASONE [Suspect]
     Indication: PLASMA CELL MYELOMA
     Route: 065
     Dates: start: 20130304, end: 20130418
  6. DEXAMETHASONE [Suspect]
     Indication: PLASMA CELL MYELOMA
     Route: 065
     Dates: start: 20130509, end: 20130523
  7. ACICLOVIR [Concomitant]
     Route: 065
     Dates: start: 201109

REACTIONS (3)
  - Diplopia [Recovered/Resolved]
  - Neck pain [Recovered/Resolved]
  - Disease progression [Recovered/Resolved]
